FAERS Safety Report 5556163-8 (Version None)
Quarter: 2007Q4

REPORT INFORMATION
  Report Type: 
  Country: None (occurrence: None)
  Receive Date: 20071211
  Receipt Date: 20071130
  Transmission Date: 20080405
  Serious: Yes (Hospitalization)
  Sender: FDA-Public Use
  Company Number: 2007BI008965

PATIENT
  Age: 58 Year
  Sex: Female
  Weight: 131.5431 kg

DRUGS (4)
  1. AVONEX [Suspect]
     Indication: MULTIPLE SCLEROSIS
     Dosage: 30 UG;QW;IM
     Route: 030
     Dates: start: 20020701, end: 20030101
  2. AVONEX [Suspect]
     Indication: MULTIPLE SCLEROSIS
     Dosage: 30 UG;QW;IM
     Route: 030
     Dates: start: 20030101, end: 20070306
  3. TYLENOL [Concomitant]
  4. ROXICODONE [Concomitant]

REACTIONS (10)
  - ANAEMIA [None]
  - ARTHRITIS [None]
  - FAECES DISCOLOURED [None]
  - FATIGUE [None]
  - INFLUENZA LIKE ILLNESS [None]
  - MENISCUS LESION [None]
  - MIGRAINE [None]
  - RENAL IMPAIRMENT [None]
  - ULCER HAEMORRHAGE [None]
  - VISION BLURRED [None]
